FAERS Safety Report 7213306-8 (Version None)
Quarter: 2010Q4

REPORT INFORMATION
  Report Type: 
  Country: None (occurrence: None)
  Receive Date: 20101126
  Receipt Date: 20100813
  Transmission Date: 20110411
  Serious: No
  Sender: FDA-Public Use
  Company Number: 313118

PATIENT
  Sex: Female

DRUGS (4)
  1. VICTOZA [Suspect]
     Indication: TYPE 2 DIABETES MELLITUS
     Dosage: 1,8 MG, QD, SUBCUTANEOUS; 1.2 MG,QD; 0.6MG, QD
     Route: 058
  2. METFORMIN (METFORMIN) [Concomitant]
  3. CELEBREX [Concomitant]
  4. ALLEGRA /01314201/ (FEXOFENADINE) [Concomitant]

REACTIONS (2)
  - DIARRHOEA [None]
  - NAUSEA [None]
